FAERS Safety Report 9303059 (Version 1)
Quarter: 2013Q1

REPORT INFORMATION
  Report Type: Spontaneous
  Country: FR (occurrence: None)
  Receive Date: 20130131
  Receipt Date: 20130131
  Transmission Date: 20140127
  Serious: Yes (Other)
  Sender: FDA-Public Use
  Company Number: LMI-2010-00481

PATIENT
  Age: 51 Year
  Sex: Male

DRUGS (14)
  1. CARDIOLITE [Suspect]
     Indication: SCAN MYOCARDIAL PERFUSION
     Dosage: 9.37 (MILLICURIES)
     Dates: start: 20100330, end: 20100330
  2. CARDIOLITE [Suspect]
     Indication: CARDIAC STRESS TEST
     Dosage: 9.37 (MILLICURIES)
     Dates: start: 20100330, end: 20100330
  3. DIPYRIDAMOLE [Suspect]
     Indication: SCAN MYOCARDIAL PERFUSION
     Dosage: SINGLE DOSE (55 MG)
     Route: 042
     Dates: start: 20100330, end: 20100330
  4. AMINOPHYLLINE (AMINOPHYLLINE) [Suspect]
     Dates: start: 20100330, end: 20100330
  5. AMLOR (AMLODIPINE BESILATE) [Concomitant]
  6. CO-APROVEL (HYDROCHLOROTHIAZIDE, IRBESARTAN) [Concomitant]
  7. CRESTOR (ROSUVASTATIN CALCIUM) [Concomitant]
  8. ASPEGIC (ACETYLSALICYLATE LYSINE) [Concomitant]
  9. CARVEDILOL (CARVEDILOL) [Concomitant]
  10. LYRICA (PREGABALIN) [Concomitant]
  11. DEPAKIN (VALPROATE SODIUM) [Concomitant]
  12. LIORESAL (BACLOFEN) [Concomitant]
  13. IXPRIM (PARACETAMOL, TRAMADOL HYDROCHLORIDE) [Concomitant]
  14. ZAMUDOL (TRAMADOL HYDROCHLORIDE) [Concomitant]

REACTIONS (16)
  - Convulsion [None]
  - Loss of consciousness [None]
  - Ventricular fibrillation [None]
  - Cardio-respiratory arrest [None]
  - Chest pain [None]
  - Abdominal pain [None]
  - Condition aggravated [None]
  - Vomiting [None]
  - Visual impairment [None]
  - Pain [None]
  - Nystagmus [None]
  - Miosis [None]
  - Vertebral artery thrombosis [None]
  - Bundle branch block left [None]
  - Contrast media reaction [None]
  - Procedural complication [None]
